FAERS Safety Report 7376848-0 (Version None)
Quarter: 2011Q1

REPORT INFORMATION
  Report Type: 
  Country: None (occurrence: None)
  Receive Date: 20110325
  Receipt Date: 20110321
  Transmission Date: 20110831
  Serious: Yes (Hospitalization, Other)
  Sender: FDA-Public Use
  Company Number: US-RB-024360-11

PATIENT
  Age: 47 Year
  Sex: Male

DRUGS (1)
  1. SUBOXONE [Suspect]
     Indication: DRUG DEPENDENCE
     Route: 060
     Dates: start: 20080101, end: 20110301

REACTIONS (2)
  - SHOULDER DEFORMITY [None]
  - MUSCULOSKELETAL PAIN [None]
